FAERS Safety Report 16949627 (Version 1)
Quarter: 2019Q4

REPORT INFORMATION
  Report Type: Spontaneous
  Country: GB (occurrence: GB)
  Receive Date: 20191023
  Receipt Date: 20191023
  Transmission Date: 20200122
  Serious: Yes (Other)
  Sender: FDA-Public Use
  Company Number: GB-TEVA-2019-GB-1125942

PATIENT
  Age: 76 Year
  Sex: Female
  Weight: 57.7 kg

DRUGS (18)
  1. CO-AMOXICLAV [Suspect]
     Active Substance: AMOXICILLIN\CLAVULANATE POTASSIUM
     Indication: URINARY TRACT INFECTION
     Dosage: 3.6 GRAM PER DAY
     Route: 042
     Dates: start: 20190922, end: 20190923
  2. GRANISETRON [Concomitant]
     Active Substance: GRANISETRON
  3. DOCUSATE [Concomitant]
     Active Substance: DOCUSATE
  4. CASSIA [Concomitant]
  5. ORAMORPH [Concomitant]
     Active Substance: MORPHINE SULFATE
  6. PARACETAMOL [Concomitant]
     Active Substance: ACETAMINOPHEN
  7. DIGOXIN. [Concomitant]
     Active Substance: DIGOXIN
  8. ALOGLIPTIN. [Concomitant]
     Active Substance: ALOGLIPTIN
  9. METFORMIN [Concomitant]
     Active Substance: METFORMIN HYDROCHLORIDE
  10. CODEINE [Concomitant]
     Active Substance: CODEINE
  11. SALBUTAMOL [Concomitant]
     Active Substance: ALBUTEROL
  12. ATORVASTATIN [Concomitant]
     Active Substance: ATORVASTATIN
  13. RANITIDINE. [Concomitant]
     Active Substance: RANITIDINE
  14. DUORESP SPIROMAX [Concomitant]
     Active Substance: BUDESONIDE\FORMOTEROL
  15. FLUDROCORTISONE [Concomitant]
     Active Substance: FLUDROCORTISONE
  16. WARFARIN [Concomitant]
     Active Substance: WARFARIN
  17. SPIRIVA [Concomitant]
     Active Substance: TIOTROPIUM BROMIDE MONOHYDRATE
  18. GLYCERYL TRINITRATE [Concomitant]
     Active Substance: NITROGLYCERIN

REACTIONS (2)
  - Liver function test abnormal [Unknown]
  - Jaundice cholestatic [Unknown]
